FAERS Safety Report 6023507-2 (Version None)
Quarter: 2008Q4

REPORT INFORMATION
  Report Type: 
  Country: None (occurrence: None)
  Receive Date: 20081230
  Receipt Date: 20081222
  Transmission Date: 20090506
  Serious: Yes (Hospitalization)
  Sender: FDA-Public Use
  Company Number: BR-WYE-H07430308

PATIENT
  Sex: Female

DRUGS (1)
  1. ATLANSIL [Suspect]

REACTIONS (1)
  - ARRHYTHMIA SUPRAVENTRICULAR [None]
